FAERS Safety Report 10033351 (Version 2)
Quarter: 2014Q2

REPORT INFORMATION
  Report Type: Report from Study
  Country: TH (occurrence: TH)
  Receive Date: 20140325
  Receipt Date: 20140402
  Transmission Date: 20141212
  Serious: No
  Sender: FDA-Public Use
  Company Number: TH-ROCHE-1370403

PATIENT
  Sex: 0

DRUGS (1)
  1. PEGASYS [Suspect]
     Indication: CHRONIC HEPATITIS C
     Route: 065

REACTIONS (2)
  - Pyrexia [Unknown]
  - Discomfort [Unknown]
